FAERS Safety Report 4500088-3 (Version None)
Quarter: 2004Q4

REPORT INFORMATION
  Report Type: 
  Country: None (occurrence: None)
  Receive Date: 20041112
  Receipt Date: 20020722
  Transmission Date: 20050328
  Serious: Yes (Other)
  Sender: FDA-Public Use
  Company Number: US-GLAXOSMITHKLINE-A0376089A

PATIENT
  Age: 26 Year
  Sex: Male
  Weight: 96.4 kg

DRUGS (1)
  1. PAXIL [Suspect]
     Dosage: 20MG PER DAY
     Route: 048
     Dates: start: 20000621

REACTIONS (15)
  - ABNORMAL DREAMS [None]
  - AFFECT LABILITY [None]
  - AGGRESSION [None]
  - AKATHISIA [None]
  - ANXIETY [None]
  - CONFUSIONAL STATE [None]
  - FEELING ABNORMAL [None]
  - INJURY [None]
  - JUDGEMENT IMPAIRED [None]
  - MANIA [None]
  - MOOD SWINGS [None]
  - MUSCLE TWITCHING [None]
  - PSYCHIATRIC SYMPTOM [None]
  - SUICIDAL IDEATION [None]
  - THINKING ABNORMAL [None]
